FAERS Safety Report 6389413-9 (Version None)
Quarter: 2009Q4

REPORT INFORMATION
  Report Type: 
  Country: None (occurrence: None)
  Receive Date: 20091006
  Receipt Date: 20090930
  Transmission Date: 20100525
  Serious: Yes (Death)
  Sender: FDA-Public Use
  Company Number: ES-JNJFOC-20091000216

PATIENT
  Age: 96 Year
  Sex: Female

DRUGS (1)
  1. CAELYX [Suspect]
     Indication: MALIGNANT PERITONEAL NEOPLASM
     Dosage: ONE DOSE
     Route: 042

REACTIONS (3)
  - DEEP VEIN THROMBOSIS [None]
  - HYPERKALAEMIA [None]
  - RENAL FAILURE ACUTE [None]
